FAERS Safety Report 9671154 (Version 2)
Quarter: 2013Q4

REPORT INFORMATION
  Report Type: Spontaneous
  Country: NL (occurrence: NL)
  Receive Date: 20131106
  Receipt Date: 20131122
  Transmission Date: 20140711
  Serious: Yes (Life-Threatening, Hospitalization)
  Sender: FDA-Public Use
  Company Number: NL-MERCK-1310NLD015156

PATIENT
  Age: 32 Year
  Sex: Female
  Weight: 103 kg

DRUGS (1)
  1. MARVELON [Suspect]
     Indication: CONTRACEPTION
     Dosage: 1 TIMES PER 1 DAYS 1 DF
     Route: 048
     Dates: start: 19890103, end: 20070327

REACTIONS (1)
  - Hepatic neoplasm [Not Recovered/Not Resolved]
